FAERS Safety Report 4730272-5 (Version None)
Quarter: 2005Q3

REPORT INFORMATION
  Report Type: 
  Country: None (occurrence: None)
  Receive Date: 20050801
  Receipt Date: 20050721
  Transmission Date: 20060218
  Serious: Yes (Hospitalization)
  Sender: FDA-Public Use
  Company Number: FR-ROCHE-411426

PATIENT
  Age: 52 Year
  Sex: Male

DRUGS (1)
  1. ROFERON-A [Suspect]
     Dosage: DOSAGE REGIMEN: 9 DOSES PER WEEK.
     Route: 058
     Dates: start: 20041217

REACTIONS (4)
  - AMYOTROPHY [None]
  - MUSCLE ATROPHY [None]
  - NEURALGIC AMYOTROPHY [None]
  - NEURITIS [None]
